FAERS Safety Report 17275213 (Version 1)
Quarter: 2020Q1

REPORT INFORMATION
  Report Type: Spontaneous
  Country: US (occurrence: US)
  Receive Date: 20200116
  Receipt Date: 20200116
  Transmission Date: 20200409
  Serious: No
  Sender: FDA-Public Use
  Company Number: US-IPSEN BIOPHARMACEUTICALS, INC.-2010-3751

PATIENT
  Sex: Female
  Weight: 42.18 kg

DRUGS (3)
  1. INCRELEX [Suspect]
     Active Substance: MECASERMIN
     Indication: INSULIN-LIKE GROWTH FACTOR DECREASED
     Route: 065
     Dates: start: 20100309, end: 201003
  2. INCRELEX [Suspect]
     Active Substance: MECASERMIN
     Route: 065
     Dates: start: 201003, end: 2010
  3. INCRELEX [Suspect]
     Active Substance: MECASERMIN
     Dosage: 40 MG/4 ML
     Route: 065
     Dates: start: 201004

REACTIONS (5)
  - Hair texture abnormal [Unknown]
  - Swelling face [Unknown]
  - Hair colour changes [Unknown]
  - Melanocytic naevus [Unknown]
  - Soft tissue swelling [Unknown]

NARRATIVE: CASE EVENT DATE: 2010
